FAERS Safety Report 10186331 (Version 1)
Quarter: 2014Q2

REPORT INFORMATION
  Report Type: Spontaneous
  Country: US (occurrence: US)
  Receive Date: 20140521
  Receipt Date: 20140521
  Transmission Date: 20141212
  Serious: No
  Sender: FDA-Public Use
  Company Number: US-ASTRAZENECA-2014SE07893

PATIENT
  Age: 77 Year
  Sex: Male
  Weight: 93.9 kg

DRUGS (5)
  1. PULMICORT [Suspect]
     Indication: BRONCHITIS
     Dosage: 360MCG BID
     Route: 055
     Dates: start: 201401
  2. LIPITOR [Concomitant]
     Indication: BLOOD CHOLESTEROL ABNORMAL
     Route: 048
     Dates: start: 1994
  3. ZETIA [Concomitant]
     Indication: BLOOD CHOLESTEROL ABNORMAL
     Route: 048
     Dates: start: 1994
  4. FLOMAX [Concomitant]
     Indication: DYSURIA
     Route: 048
     Dates: start: 2010
  5. CITALOPRAM [Concomitant]
     Indication: DEPRESSION
     Route: 048
     Dates: start: 20131218

REACTIONS (4)
  - Tremor [Not Recovered/Not Resolved]
  - Anxiety [Not Recovered/Not Resolved]
  - Intentional product misuse [Recovered/Resolved]
  - Off label use [Not Recovered/Not Resolved]
